FAERS Safety Report 7345373-5 (Version None)
Quarter: 2011Q1

REPORT INFORMATION
  Report Type: 
  Country: None (occurrence: None)
  Receive Date: 20110310
  Receipt Date: 20110308
  Transmission Date: 20110831
  Serious: Yes (Death)
  Sender: FDA-Public Use
  Company Number: PHHY2011US11091

PATIENT
  Sex: Female
  Weight: 112 kg

DRUGS (8)
  1. EXJADE [Suspect]
     Indication: BREAST CANCER
     Dosage: 500 MG, BID
     Route: 048
  2. OXYCODONE AND ACETAMINOPHEN [Concomitant]
  3. DIOVAN HCT [Concomitant]
  4. INDERAL LA [Concomitant]
  5. ARIMIDEX [Concomitant]
  6. LIPITOR [Concomitant]
  7. VICODIN [Concomitant]
  8. PROTONIX [Concomitant]

REACTIONS (1)
  - NEOPLASM MALIGNANT [None]
